FAERS Safety Report 8993451 (Version 1)
Quarter: 2013Q1

REPORT INFORMATION
  Report Type: Spontaneous
  Country: JP (occurrence: JP)
  Receive Date: 20130102
  Receipt Date: 20130102
  Transmission Date: 20140127
  Serious: Yes (Hospitalization)
  Sender: FDA-Public Use
  Company Number: JP-BAYER-2012-133691

PATIENT
  Age: 80 Year
  Sex: Female

DRUGS (2)
  1. BAYASPIRIN [Suspect]
     Route: 048
  2. IRON PREPARATIONS [Concomitant]
     Indication: ANAEMIA

REACTIONS (2)
  - Tumour haemorrhage [None]
  - Pyogenic granuloma [None]
